FAERS Safety Report 20572235 (Version 3)
Quarter: 2022Q3

REPORT INFORMATION
  Report Type: Spontaneous
  Country: DE (occurrence: DE)
  Receive Date: 20220309
  Receipt Date: 20220713
  Transmission Date: 20221026
  Serious: Yes (Other)
  Sender: FDA-Public Use
  Company Number: DE-GSKCCFEMEA-Case-01437248_AE-55524

PATIENT

DRUGS (3)
  1. ZEJULA [Suspect]
     Active Substance: NIRAPARIB
     Indication: Ovarian cancer
     Dosage: 200 MG
     Dates: start: 202201
  2. ZEJULA [Suspect]
     Active Substance: NIRAPARIB
     Dosage: 100 MG
  3. ZEJULA [Suspect]
     Active Substance: NIRAPARIB
     Dosage: UNK, Z (200 MG /100 MG ALTERNATELY)

REACTIONS (10)
  - Renal impairment [Unknown]
  - Nausea [Unknown]
  - Intestinal atony [Not Recovered/Not Resolved]
  - Pain [Unknown]
  - Flatulence [Unknown]
  - Tension headache [Unknown]
  - Adverse drug reaction [Unknown]
  - Blood chromogranin A increased [Unknown]
  - Off label use [Unknown]
  - Inappropriate schedule of product administration [Unknown]
